FAERS Safety Report 13056281 (Version 1)
Quarter: 2016Q4

REPORT INFORMATION
  Report Type: Spontaneous
  Country: US (occurrence: US)
  Receive Date: 20161222
  Receipt Date: 20161222
  Transmission Date: 20170207
  Serious: No
  Sender: FDA-Public Use
  Company Number: US-PFIZER INC-2016582663

PATIENT
  Age: 84 Year
  Sex: Male

DRUGS (3)
  1. GABAPENTIN. [Suspect]
     Active Substance: GABAPENTIN
     Dosage: UNK
  2. NIACIN. [Suspect]
     Active Substance: NIACIN
     Dosage: UNK
  3. TAMSULOSIN HCL [Suspect]
     Active Substance: TAMSULOSIN
     Dosage: UNK

REACTIONS (1)
  - Drug hypersensitivity [Unknown]
